FAERS Safety Report 7511339-5 (Version None)
Quarter: 2011Q2

REPORT INFORMATION
  Report Type: 
  Country: None (occurrence: None)
  Receive Date: 20110531
  Receipt Date: 20110505
  Transmission Date: 20111010
  Serious: Yes (Hospitalization, Other)
  Sender: FDA-Public Use
  Company Number: US-BAYER-201034066NA

PATIENT
  Age: 20 Year
  Sex: Female
  Weight: 116.1 kg

DRUGS (9)
  1. EFFEXOR [Concomitant]
  2. YASMIN [Suspect]
     Indication: PRODUCT USED FOR UNKNOWN INDICATION
     Route: 048
  3. TRIPHASIL-21 [Concomitant]
     Dosage: UNK
     Dates: start: 20080227
  4. DOXYCYCLINE [Concomitant]
     Dosage: UNK
  5. LEVAQUIN [Concomitant]
  6. LAMICTAL [Concomitant]
  7. SEROQUEL [Concomitant]
  8. YAZ [Suspect]
     Indication: PRODUCT USED FOR UNKNOWN INDICATION
     Route: 048
  9. KLONOPIN [Concomitant]

REACTIONS (2)
  - CHOLECYSTECTOMY [None]
  - CHOLECYSTITIS CHRONIC [None]
